FAERS Safety Report 7053512-9 (Version None)
Quarter: 2010Q4

REPORT INFORMATION
  Report Type: 
  Country: None (occurrence: None)
  Receive Date: 20101015
  Receipt Date: 20101006
  Transmission Date: 20110411
  Serious: Yes (Other)
  Sender: FDA-Public Use
  Company Number: 2010SP053162

PATIENT
  Age: 59 Year
  Sex: Male

DRUGS (1)
  1. DESLORATADINE [Suspect]
     Indication: SEBORRHOEIC DERMATITIS
     Dosage: QD;PO
     Route: 048
     Dates: start: 20100722

REACTIONS (2)
  - FACE OEDEMA [None]
  - OEDEMA PERIPHERAL [None]
